FAERS Safety Report 5342574-2 (Version None)
Quarter: 2007Q2

REPORT INFORMATION
  Report Type: 
  Country: None (occurrence: None)
  Receive Date: 20070601
  Receipt Date: 20061229
  Transmission Date: 20071010
  Serious: No
  Sender: FDA-Public Use
  Company Number: A0633542A

PATIENT
  Age: 9 Month
  Sex: Female
  Weight: 7.3 kg

DRUGS (2)
  1. AUGMENTIN '125' [Suspect]
     Indication: DRUG USE FOR UNKNOWN INDICATION
     Dosage: .5TSP TWICE PER DAY
     Route: 048
  2. TRIAMINIC COLD + COUGH [Suspect]
     Indication: NASOPHARYNGITIS
     Dosage: .25TSP SINGLE DOSE
     Route: 048
     Dates: start: 20061204, end: 20061204

REACTIONS (2)
  - HYPERSENSITIVITY [None]
  - RASH [None]
